FAERS Safety Report 26042981 (Version 1)
Quarter: 2025Q4

REPORT INFORMATION
  Report Type: Spontaneous
  Country: US (occurrence: US)
  Receive Date: 20251113
  Receipt Date: 20251113
  Transmission Date: 20260118
  Serious: No
  Sender: ANI
  Company Number: US-ANIPHARMA-2025-US-045339

PATIENT
  Age: 64 Year
  Sex: Male
  Weight: 89.36 kg

DRUGS (10)
  1. DOXAZOSINT MESYLATE 100 % POWDER [Concomitant]
  2. Bupropion hydrochloride 100% powder [Concomitant]
  3. OXYCODONE HCL (IR) [Concomitant]
  4. MODERNA COVID-19 VACCINE [Concomitant]
     Active Substance: ELASOMERAN
  5. PREGABALIN [Concomitant]
     Active Substance: PREGABALIN
  6. VITAMINS [Concomitant]
     Active Substance: VITAMINS
  7. LISINOPRIL 100% POWDER [Concomitant]
  8. TIZANIDINE HCL 100% POWDER [Concomitant]
  9. PANTOPRAZOLE SODIUM 20 MG TABLET DR [Concomitant]
  10. CORTICOTROPIN [Suspect]
     Active Substance: CORTICOTROPIN
     Indication: Rheumatoid arthritis
     Dosage: 80 UNITS TWICE WEEKLY FOR 4 WEEKS
     Route: 058

REACTIONS (1)
  - Injection site haemorrhage [Unknown]
